FAERS Safety Report 6005966-4 (Version None)
Quarter: 2008Q4

REPORT INFORMATION
  Report Type: 
  Country: None (occurrence: None)
  Receive Date: 20081217
  Receipt Date: 20081209
  Transmission Date: 20090506
  Serious: Yes (Hospitalization)
  Sender: FDA-Public Use
  Company Number: PHHY2008DE30221

PATIENT
  Sex: Male
  Weight: 87 kg

DRUGS (1)
  1. EUCREAS [Suspect]
     Indication: TYPE 2 DIABETES MELLITUS
     Dosage: 2 DF DOSAGE FORM EVERY DAY
     Route: 048
     Dates: start: 20080906, end: 20080912

REACTIONS (31)
  - AORTIC ARTERIOSCLEROSIS [None]
  - ARTERIAL DISORDER [None]
  - BIOPSY KIDNEY ABNORMAL [None]
  - BIOPSY SKIN ABNORMAL [None]
  - BLOOD GLUCOSE INCREASED [None]
  - BLOOD TRIGLYCERIDES INCREASED [None]
  - CATARACT [None]
  - CATARACT OPERATION [None]
  - CREATININE RENAL CLEARANCE DECREASED [None]
  - CYST [None]
  - DERMATITIS [None]
  - DIABETES MELLITUS INADEQUATE CONTROL [None]
  - ELECTROCARDIOGRAM ABNORMAL [None]
  - FOCAL SEGMENTAL GLOMERULOSCLEROSIS [None]
  - GALLBLADDER POLYP [None]
  - GAMMA-GLUTAMYLTRANSFERASE INCREASED [None]
  - GLUCOSE URINE PRESENT [None]
  - GLYCOSYLATED HAEMOGLOBIN INCREASED [None]
  - IGA NEPHROPATHY [None]
  - INGUINAL HERNIA [None]
  - LEUKOCYTOCLASTIC VASCULITIS [None]
  - NEPHROSCLEROSIS [None]
  - OBESITY [None]
  - PROTEINURIA [None]
  - QRS AXIS ABNORMAL [None]
  - RASH MACULO-PAPULAR [None]
  - RASH PRURITIC [None]
  - RED BLOOD CELL SEDIMENTATION RATE DECREASED [None]
  - TUBULOINTERSTITIAL NEPHRITIS [None]
  - ULTRASOUND SCAN ABNORMAL [None]
  - WHITE BLOOD CELLS URINE POSITIVE [None]
